FAERS Safety Report 7042335-2 (Version None)
Quarter: 2010Q4

REPORT INFORMATION
  Report Type: 
  Country: None (occurrence: None)
  Receive Date: 20101013
  Receipt Date: 20100316
  Transmission Date: 20110411
  Serious: No
  Sender: FDA-Public Use
  Company Number: US-ASTRAZENECA-2010SE11477

PATIENT
  Sex: Female
  Weight: 74.4 kg

DRUGS (7)
  1. SYMBICORT [Suspect]
     Dosage: 80/4.5 MICROGRAM, 1 PUFF
     Route: 055
     Dates: start: 20081201
  2. SYMBICORT [Suspect]
     Dosage: 2 PUFFS
     Route: 055
     Dates: start: 20091101
  3. SYMBICORT [Suspect]
     Dosage: 1 PUFF
     Route: 055
  4. PREVACID [Concomitant]
  5. LEVOTHYROXINE [Concomitant]
  6. PROVENTIL [Concomitant]
  7. SIMVASTATIN [Concomitant]

REACTIONS (3)
  - DISCOMFORT [None]
  - EYE IRRITATION [None]
  - SOMNOLENCE [None]
